FAERS Safety Report 16290284 (Version 2)
Quarter: 2019Q2

REPORT INFORMATION
  Report Type: Report from Study
  Country: US (occurrence: US)
  Receive Date: 20190509
  Receipt Date: 20190613
  Transmission Date: 20190711
  Serious: Yes (Hospitalization, Other)
  Sender: FDA-Public Use
  Company Number: US-SA-2018SA210267

PATIENT
  Age: 61 Year
  Sex: Female

DRUGS (3)
  1. INSULIN GLARGINE [Suspect]
     Active Substance: INSULIN GLARGINE
     Dosage: 45 U, QD
     Route: 058
     Dates: start: 20180415
  2. INSULIN GLARGINE [Suspect]
     Active Substance: INSULIN GLARGINE
     Indication: TYPE 2 DIABETES MELLITUS
     Dosage: 15 U, BID
     Route: 058
     Dates: start: 20161015
  3. INSULIN GLARGINE [Suspect]
     Active Substance: INSULIN GLARGINE
     Dosage: 25 U, BID
     Route: 058

REACTIONS (5)
  - Visual impairment [Not Recovered/Not Resolved]
  - Inappropriate schedule of product administration [Unknown]
  - Memory impairment [Not Recovered/Not Resolved]
  - Cerebrovascular accident [Not Recovered/Not Resolved]
  - Impaired work ability [Recovering/Resolving]

NARRATIVE: CASE EVENT DATE: 20161015
